FAERS Safety Report 14181220 (Version 1)
Quarter: 2017Q4

REPORT INFORMATION
  Report Type: Spontaneous
  Country: US (occurrence: US)
  Receive Date: 20171112
  Receipt Date: 20171112
  Transmission Date: 20180321
  Serious: No
  Sender: FDA-Public Use
  Company Number: US-BAUSCH-BL-2017-001122

PATIENT
  Age: 22 Year
  Sex: Female
  Weight: 77.18 kg

DRUGS (2)
  1. ONEXTON [Suspect]
     Active Substance: BENZOYL PEROXIDE\CLINDAMYCIN PHOSPHATE
     Indication: ACNE
     Dosage: ONE APPLICATION ONCE DAILY IN THE MORNING
     Route: 061
     Dates: start: 20170105, end: 20170109
  2. RETIN-A [Suspect]
     Active Substance: TRETINOIN
     Indication: ACNE
     Dosage: ONE APPLICATION ONCE DAILY IN THE EVENING
     Route: 061
     Dates: start: 20170105, end: 20170111

REACTIONS (7)
  - Dermatitis contact [Unknown]
  - Swelling face [Recovering/Resolving]
  - Skin tightness [Recovering/Resolving]
  - Pruritus [Recovering/Resolving]
  - Burning sensation [Recovered/Resolved]
  - Erythema [Recovered/Resolved]
  - Skin irritation [Recovering/Resolving]

NARRATIVE: CASE EVENT DATE: 201701
